FAERS Safety Report 26188228 (Version 1)
Quarter: 2025Q4

REPORT INFORMATION
  Report Type: Report from Study
  Country: EU (occurrence: EU)
  Receive Date: 20251222
  Receipt Date: 20251222
  Transmission Date: 20260117
  Serious: Yes (Hospitalization, Other)
  Sender: NOVARTIS
  Company Number: EU-002147023-NVSC2024IT239105

PATIENT
  Age: 1 Year
  Sex: Female
  Weight: 7.9 kg

DRUGS (20)
  1. MEKINIST [Suspect]
     Active Substance: TRAMETINIB DIMETHYL SULFOXIDE
     Indication: Optic glioma
     Dosage: 4.5 ML, QD
     Route: 048
     Dates: start: 20240820, end: 20241211
  2. MEKINIST [Suspect]
     Active Substance: TRAMETINIB DIMETHYL SULFOXIDE
     Dosage: 3.5 ML (REDUCED DOSE)
     Route: 048
     Dates: start: 20241220
  3. MEKINIST [Suspect]
     Active Substance: TRAMETINIB DIMETHYL SULFOXIDE
     Dosage: 4 ML
     Route: 048
     Dates: start: 20241227
  4. MEKINIST [Suspect]
     Active Substance: TRAMETINIB DIMETHYL SULFOXIDE
     Dosage: 4.5 ML
     Route: 048
     Dates: start: 20250103
  5. MEKINIST [Suspect]
     Active Substance: TRAMETINIB DIMETHYL SULFOXIDE
     Dosage: 5 ML, QD
     Route: 048
     Dates: end: 20241211
  6. MEKINIST [Suspect]
     Active Substance: TRAMETINIB DIMETHYL SULFOXIDE
     Dosage: 3.5 ML
     Route: 048
     Dates: start: 20241219
  7. MEKINIST [Suspect]
     Active Substance: TRAMETINIB DIMETHYL SULFOXIDE
     Dosage: 2 ML, QD (44% OF THE FULL DOSE)
     Route: 048
     Dates: start: 20250224, end: 20250313
  8. MEKINIST [Suspect]
     Active Substance: TRAMETINIB DIMETHYL SULFOXIDE
     Dosage: 2 ML, (0.005 MG/ML) (REPRESENTING 33% OF THE THEORETICAL TOTAL DOSE RECALCULATED BASED ON PATIENT WE
     Route: 048
     Dates: start: 20250321
  9. MEKINIST [Suspect]
     Active Substance: TRAMETINIB DIMETHYL SULFOXIDE
     Dosage: 4 ML, QD (66% OF THE THEORETICAL TOTAL DOSE)
     Route: 048
     Dates: start: 20250327
  10. MEKINIST [Suspect]
     Active Substance: TRAMETINIB DIMETHYL SULFOXIDE
     Dosage: 5 ML, QD
     Route: 048
     Dates: start: 20250430, end: 20251114
  11. MEKINIST [Suspect]
     Active Substance: TRAMETINIB DIMETHYL SULFOXIDE
     Dosage: 5 ML (RESTARTED)
     Route: 048
     Dates: start: 20251123
  12. CARVEDILOL [Concomitant]
     Active Substance: CARVEDILOL
     Indication: Hypertension
     Dosage: 1 ML, QD
     Route: 065
     Dates: start: 20241206
  13. CARVEDILOL [Concomitant]
     Active Substance: CARVEDILOL
     Dosage: 1 ML, QD
     Route: 065
     Dates: start: 20241211
  14. AMLODIPINE [Concomitant]
     Active Substance: AMLODIPINE BESYLATE
     Indication: Hypertension
     Dosage: 0.8 ML 2 TIMES/DAY AND 5 ML 5 TIMES/DAY
     Route: 065
     Dates: start: 202404
  15. AMLODIPINE [Concomitant]
     Active Substance: AMLODIPINE BESYLATE
     Dosage: 0.8 ML 2 TIMES/DAY AND 5 ML 5 TIMES/DAY
     Route: 065
     Dates: start: 20241211
  16. DOMPERIDONE [Concomitant]
     Active Substance: DOMPERIDONE
     Indication: Prophylaxis of nausea and vomiting
     Dosage: UNK
     Route: 065
     Dates: start: 20240827
  17. DOMPERIDONE [Concomitant]
     Active Substance: DOMPERIDONE
     Dosage: UNK
     Route: 065
     Dates: start: 20241211
  18. CARBOPLATIN [Concomitant]
     Active Substance: CARBOPLATIN
     Indication: Product used for unknown indication
     Dosage: UNK
     Route: 065
  19. VINCRISTINE [Concomitant]
     Active Substance: VINCRISTINE
     Indication: Product used for unknown indication
     Dosage: CYCLES EVERY 28 DAYS
     Route: 065
  20. CYCLOPHOSPHAMIDE [Concomitant]
     Active Substance: CYCLOPHOSPHAMIDE
     Indication: Product used for unknown indication
     Dosage: CYCLES EVERY 28 DAYS
     Route: 065

REACTIONS (3)
  - Upper respiratory tract inflammation [Recovered/Resolved]
  - Hyperkalaemia [Recovered/Resolved]
  - Blood creatine phosphokinase increased [Recovered/Resolved]

NARRATIVE: CASE EVENT DATE: 20241212
